FAERS Safety Report 23037418 (Version 1)
Quarter: 2023Q4

REPORT INFORMATION
  Report Type: Report from Study
  Country: SE (occurrence: FI)
  Receive Date: 20231006
  Receipt Date: 20231006
  Transmission Date: 20240110
  Serious: Yes (Hospitalization, Other)
  Sender: FDA-Public Use
  Company Number: SE-ASTELLAS-2023US029648

PATIENT
  Age: 69 Year
  Sex: Male

DRUGS (1)
  1. TACROLIMUS [Suspect]
     Active Substance: TACROLIMUS
     Indication: Product used for unknown indication
     Dosage: UNK UNK, UNKNOWN FREQ.
     Route: 065
     Dates: start: 20180103

REACTIONS (11)
  - Diarrhoea [Recovered/Resolved]
  - C-reactive protein increased [Recovered/Resolved]
  - Viral infection [Recovered/Resolved]
  - Influenza [Recovered/Resolved]
  - Sinusitis [Recovered/Resolved]
  - Transient ischaemic attack [Recovered/Resolved]
  - Renal impairment [Recovered/Resolved]
  - Renal impairment [Recovered/Resolved]
  - Aphthous ulcer [Recovered/Resolved]
  - Neutropenia [Recovered/Resolved]
  - Salmonellosis [Recovered/Resolved]

NARRATIVE: CASE EVENT DATE: 20180202
